FAERS Safety Report 23401695 (Version 1)
Quarter: 2024Q1

REPORT INFORMATION
  Report Type: Spontaneous
  Country: GB (occurrence: GB)
  Receive Date: 20240115
  Receipt Date: 20240115
  Transmission Date: 20240410
  Serious: Yes (Other)
  Sender: FDA-Public Use
  Company Number: None

PATIENT
  Age: 60 Year
  Weight: 55 kg

DRUGS (4)
  1. ATORVASTATIN [Suspect]
     Active Substance: ATORVASTATIN
     Indication: Product used for unknown indication
     Dosage: 20 MG DAILY
     Route: 065
     Dates: start: 20231120, end: 20231225
  2. LANSOPRAZOLE [Concomitant]
     Active Substance: LANSOPRAZOLE
  3. AMITRIPTYLINE [Concomitant]
     Active Substance: AMITRIPTYLINE
     Indication: Insomnia
  4. NIFEDIPINE [Concomitant]
     Active Substance: NIFEDIPINE
     Indication: Raynaud^s phenomenon

REACTIONS (1)
  - Immune thrombocytopenia [Unknown]

NARRATIVE: CASE EVENT DATE: 20231220
